FAERS Safety Report 25190722 (Version 2)
Quarter: 2025Q2

REPORT INFORMATION
  Report Type: Spontaneous
  Country: US (occurrence: US)
  Receive Date: 20250411
  Receipt Date: 20250429
  Transmission Date: 20250717
  Serious: No
  Sender: CSL BEHRING
  Company Number: US-BEH-2025201191

PATIENT
  Age: 68 Year
  Sex: Female

DRUGS (3)
  1. HIZENTRA [Suspect]
     Active Substance: HUMAN IMMUNOGLOBULIN G
     Indication: Small fibre neuropathy
     Dosage: 15 G, BIW (ADMINISTERED EVERY 3 TO 4 DAYS)
     Route: 065
  2. HIZENTRA [Suspect]
     Active Substance: HUMAN IMMUNOGLOBULIN G
     Indication: Polyneuropathy
     Route: 065
     Dates: start: 20250330
  3. HIZENTRA [Suspect]
     Active Substance: HUMAN IMMUNOGLOBULIN G
     Route: 065
     Dates: start: 202503

REACTIONS (8)
  - Incorrect dose administered [Unknown]
  - Infusion site swelling [Unknown]
  - Skin induration [Unknown]
  - Skin disorder [Unknown]
  - Needle issue [Unknown]
  - Autoantibody positive [Unknown]
  - Misleading laboratory test result [Unknown]
  - Off label use [Unknown]

NARRATIVE: CASE EVENT DATE: 20250330
